FAERS Safety Report 5160876-X (Version None)
Quarter: 2006Q4

REPORT INFORMATION
  Report Type: 
  Country: None (occurrence: None)
  Receive Date: 20061121
  Receipt Date: 20061108
  Transmission Date: 20070319
  Serious: Yes (Hospitalization)
  Sender: FDA-Public Use
  Company Number: 230104K06ITA

PATIENT
  Age: 45 Year
  Sex: Female

DRUGS (1)
  1. REBIF [Suspect]
     Indication: RELAPSING-REMITTING MULTIPLE SCLEROSIS
     Dosage: 4 MCG, SUBCUTANEOUS
     Route: 058
     Dates: start: 20050216, end: 20060918

REACTIONS (3)
  - ANGINA UNSTABLE [None]
  - ISCHAEMIC CARDIOMYOPATHY [None]
  - THROMBOCYTOPENIA [None]
